FAERS Safety Report 5585438-1 (Version None)
Quarter: 2008Q1

REPORT INFORMATION
  Report Type: 
  Country: None (occurrence: None)
  Receive Date: 20080109
  Receipt Date: 20080102
  Transmission Date: 20080703
  Serious: Yes (Life-Threatening, Hospitalization)
  Sender: FDA-Public Use
  Company Number: RU-AVENTIS-200610272GDDC

PATIENT
  Age: 68 Year
  Sex: Female

DRUGS (9)
  1. TAXOTERE [Suspect]
     Route: 042
     Dates: start: 20051205, end: 20051205
  2. TAXOTERE [Suspect]
  3. DEXAMETHASONE TAB [Concomitant]
     Dosage: DOSE: UNK
  4. METAMIZOLE SODIUM [Concomitant]
     Dosage: DOSE: UNK
  5. ENALAPRIL [Concomitant]
     Dosage: DOSE: UNK
  6. CODEINE [Concomitant]
     Dosage: DOSE: UNK
  7. TERPIN HYDRATE [Concomitant]
     Dosage: DOSE: UNK
  8. BISMUTH [Concomitant]
     Dosage: DOSE: UNK
  9. NEUPOGEN [Concomitant]
     Dosage: DOSE: UNK

REACTIONS (5)
  - DEHYDRATION [None]
  - DIARRHOEA [None]
  - ELECTROLYTE IMBALANCE [None]
  - HYPERGLYCAEMIA [None]
  - NEUTROPENIA [None]
